FAERS Safety Report 19881842 (Version 1)
Quarter: 2021Q3

REPORT INFORMATION
  Report Type: Spontaneous
  Country: CN (occurrence: CN)
  Receive Date: 20210924
  Receipt Date: 20210924
  Transmission Date: 20211014
  Serious: Yes (Other)
  Sender: FDA-Public Use
  Company Number: CN-009507513-2109CHN004626

PATIENT
  Age: 80 Year
  Sex: Male
  Weight: 70 kg

DRUGS (2)
  1. MOXIFLOXACIN HYDROCHLORIDE AND SODIUM CHLORIDE [Suspect]
     Active Substance: MOXIFLOXACIN HYDROCHLORIDE
     Indication: ANTI-INFECTIVE THERAPY
     Dosage: DOSE: 0.4 G, FREQUENCY: ONCE DAILY
     Route: 041
     Dates: start: 20210822, end: 20210901
  2. TIENAM [Suspect]
     Active Substance: CILASTATIN SODIUM\IMIPENEM
     Indication: ANTI-INFECTIVE THERAPY
     Dosage: DOSE: 1 G, FREQUENCY: 3 TIMES A DAY
     Route: 041
     Dates: start: 20210822, end: 20210901

REACTIONS (2)
  - Concomitant disease aggravated [Unknown]
  - Petit mal epilepsy [Recovering/Resolving]

NARRATIVE: CASE EVENT DATE: 2021
